FAERS Safety Report 10455107 (Version 1)
Quarter: 2014Q3

REPORT INFORMATION
  Report Type: Spontaneous
  Country: DE (occurrence: DE)
  Receive Date: 20140916
  Receipt Date: 20140916
  Transmission Date: 20150326
  Serious: Yes (Other)
  Sender: FDA-Public Use
  Company Number: DE-AUROBINDO-AUR-APL-2014-09599

PATIENT
  Age: 70 Year
  Sex: Male

DRUGS (3)
  1. AMLODIPINE RATIOPHARM /00972402/ [Suspect]
     Active Substance: AMLODIPINE BESYLATE
     Indication: PRODUCT USED FOR UNKNOWN INDICATION
     Dosage: 5 MG, ONCE A DAY
     Route: 048
  2. LAMOTRIGINE AUROBINDO 25MG [Suspect]
     Active Substance: LAMOTRIGINE
     Indication: PRODUCT USED FOR UNKNOWN INDICATION
     Dosage: 25 MG TWICE A DAY FOR EVERY TWO DAYS
     Route: 048
     Dates: start: 20131015
  3. ENALAPRIL RATIOPHARM [Suspect]
     Active Substance: ENALAPRIL
     Indication: PRODUCT USED FOR UNKNOWN INDICATION
     Dosage: 10 MG, TWO TIMES A DAY
     Route: 048

REACTIONS (29)
  - Depression [Unknown]
  - Arthralgia [Unknown]
  - Loss of consciousness [Unknown]
  - Abdominal discomfort [Unknown]
  - Tinnitus [Unknown]
  - Ocular hyperaemia [Unknown]
  - Hyperhidrosis [Unknown]
  - Alopecia [Unknown]
  - Rash [Unknown]
  - Micturition urgency [Unknown]
  - Dry mouth [Unknown]
  - Syncope [Unknown]
  - Dizziness [Unknown]
  - Anaemia [Unknown]
  - Aggression [Unknown]
  - Myalgia [Unknown]
  - Atrial fibrillation [Not Recovered/Not Resolved]
  - Irritability [Unknown]
  - Arrhythmia [Not Recovered/Not Resolved]
  - Joint swelling [Unknown]
  - Convulsion [Unknown]
  - Renal impairment [Unknown]
  - Dyskinesia [Unknown]
  - Eye swelling [Unknown]
  - Eye discharge [Unknown]
  - Erectile dysfunction [Unknown]
  - Fatigue [Unknown]
  - Breast enlargement [Unknown]
  - Weight decreased [Unknown]

NARRATIVE: CASE EVENT DATE: 20050426
